FAERS Safety Report 22593624 (Version 1)
Quarter: 2023Q2

REPORT INFORMATION
  Report Type: Spontaneous
  Country: DE (occurrence: DE)
  Receive Date: 20230613
  Receipt Date: 20230613
  Transmission Date: 20230721
  Serious: Yes (Other)
  Sender: FDA-Public Use
  Company Number: DE-DENTSPLY-2023SCDP000179

PATIENT
  Age: 58 Year
  Sex: Male

DRUGS (3)
  1. XYLOCAINE [Suspect]
     Active Substance: LIDOCAINE HYDROCHLORIDE
     Indication: Pain management
     Dosage: 180 MILLIGRAM PER 1.5 HOUR XYLOCAINE (ASPEN) (WEEKLY INFUSION)
     Route: 041
     Dates: start: 20221004
  2. SODIUM BICARBONATE [Suspect]
     Active Substance: SODIUM BICARBONATE
     Indication: Pain management
     Dosage: 50 MILLIGRAM PER 1.5 HOURS (WEEKLY INFUSION)
     Route: 041
     Dates: start: 20221004, end: 202303
  3. JONOSTERIL [CALCIUM CHLORIDE DIHYDRATE;POTASSIUM CHLORIDE;SODIUM LACTA [Concomitant]
     Indication: Pain management
     Dosage: 500 MILLILITER PER 1.5 HOURS (WEEKLY INFUSION)
     Route: 041
     Dates: start: 20221004

REACTIONS (2)
  - Arrhythmia [Recovered/Resolved]
  - Peripheral coldness [None]

NARRATIVE: CASE EVENT DATE: 20221001
